FAERS Safety Report 13340938 (Version 2)
Quarter: 2017Q2

REPORT INFORMATION
  Report Type: Report from Study
  Country: DE (occurrence: DE)
  Receive Date: 20170316
  Receipt Date: 20170426
  Transmission Date: 20170830
  Serious: Yes (Other)
  Sender: FDA-Public Use
  Company Number: DE-ROCHE-1790732

PATIENT
  Age: 62 Year
  Sex: Male
  Weight: 72 kg

DRUGS (14)
  1. RIBAVIRIN. [Suspect]
     Active Substance: RIBAVIRIN
     Indication: CHRONIC HEPATITIS C
     Route: 048
     Dates: start: 20120113, end: 20120329
  2. RIBAVIRIN. [Suspect]
     Active Substance: RIBAVIRIN
     Route: 048
     Dates: start: 20120330, end: 20121214
  3. SPIRONOLACTON [Concomitant]
     Active Substance: SPIRONOLACTONE
     Route: 065
     Dates: start: 20120413
  4. AMPHO MORONAL [Concomitant]
     Active Substance: AMPHOTERICIN B
     Route: 065
     Dates: start: 20120420
  5. HYDROCHLOROTHIAZID [Concomitant]
     Active Substance: HYDROCHLOROTHIAZIDE
     Route: 065
  6. LISINOPRIL. [Concomitant]
     Active Substance: LISINOPRIL
     Route: 065
  7. TAMSULOSIN [Concomitant]
     Active Substance: TAMSULOSIN
     Route: 065
  8. PEG-INTERFERON ALFA 2A [Suspect]
     Active Substance: PEGINTERFERON ALFA-2A
     Indication: CHRONIC HEPATITIS C
     Route: 058
     Dates: start: 20120113, end: 20121214
  9. TELAPREVIR [Suspect]
     Active Substance: TELAPREVIR
     Indication: CHRONIC HEPATITIS C
     Route: 048
     Dates: start: 20120113, end: 20120330
  10. BIOTIN [Concomitant]
     Active Substance: BIOTIN
     Route: 065
  11. BISOPROLOL [Concomitant]
     Active Substance: BISOPROLOL
     Route: 065
  12. VESIKUR [Concomitant]
     Active Substance: SOLIFENACIN SUCCINATE
     Route: 065
  13. VITAMIN D3-HEVERT [Concomitant]
     Route: 065
  14. BETAGALEN [Concomitant]
     Route: 065
     Dates: start: 20120203

REACTIONS (13)
  - Dyspnoea exertional [Recovering/Resolving]
  - Rash [Recovering/Resolving]
  - Dysgeusia [Recovered/Resolved]
  - Influenza like illness [Recovered/Resolved]
  - Abdominal discomfort [Recovered/Resolved]
  - Anaemia [Recovering/Resolving]
  - Pruritus [Recovered/Resolved]
  - Haemorrhoidal haemorrhage [Recovered/Resolved]
  - Skin disorder [Recovering/Resolving]
  - Skin disorder [Recovering/Resolving]
  - Fatigue [Recovering/Resolving]
  - Decreased appetite [Recovered/Resolved]
  - Headache [Recovered/Resolved]

NARRATIVE: CASE EVENT DATE: 20120116
